FAERS Safety Report 5280710-7 (Version None)
Quarter: 2007Q1

REPORT INFORMATION
  Report Type: 
  Country: None (occurrence: None)
  Receive Date: 20061218
  Receipt Date: 20051219
  Transmission Date: 20070707
  Serious: Yes (Hospitalization, Other)
  Sender: FDA-Public Use
  Company Number: US200512004380

PATIENT
  Age: 45 Year
  Sex: Female

DRUGS (9)
  1. HUMULIN L [Suspect]
     Indication: DIABETES MELLITUS
  2. HUMULIN R [Suspect]
     Indication: DIABETES MELLITUS
  3. ILETIN [Suspect]
     Indication: DIABETES MELLITUS
  4. ILETIN [Suspect]
     Indication: DIABETES MELLITUS
     Dates: start: 19670101
  5. ILETIN [Suspect]
     Indication: DIABETES MELLITUS
     Dosage: SEE IMAGE
     Dates: start: 19970101
  6. ILETIN [Suspect]
     Indication: DIABETES MELLITUS
     Dosage: SEE IMAGE
     Dates: start: 20051201
  7. ILETIN [Suspect]
     Indication: DIABETES MELLITUS
     Dosage: SEE IMAGE
     Dates: start: 20051201
  8. HUMALOG [Suspect]
     Indication: DIABETES MELLITUS
  9. ILETIN [Suspect]
     Indication: DIABETES MELLITUS
     Dates: start: 20030101

REACTIONS (4)
  - DIABETIC KETOACIDOSIS [None]
  - HYPOGLYCAEMIA UNAWARENESS [None]
  - HYPOGLYCAEMIC SEIZURE [None]
  - VISUAL DISTURBANCE [None]
